FAERS Safety Report 8370961-7 (Version None)
Quarter: 2012Q2

REPORT INFORMATION
  Report Type: 
  Country: None (occurrence: None)
  Receive Date: 20120518
  Receipt Date: 20120510
  Transmission Date: 20120825
  Serious: Yes (Other)
  Sender: FDA-Public Use
  Company Number: US-MERCK-1111USA02478

PATIENT
  Age: 61 Year
  Sex: Female
  Weight: 58 kg

DRUGS (1)
  1. FOSAMAX [Suspect]
     Route: 048
     Dates: start: 19970101, end: 20070101

REACTIONS (21)
  - OSTEOMYELITIS [None]
  - OSTEONECROSIS OF JAW [None]
  - CHRONIC OBSTRUCTIVE PULMONARY DISEASE [None]
  - TEMPOROMANDIBULAR JOINT SYNDROME [None]
  - DRUG INEFFECTIVE [None]
  - JAW FRACTURE [None]
  - CORONARY ARTERY DISEASE [None]
  - TOOTH INFECTION [None]
  - TOOTH FRACTURE [None]
  - TOOTH DISORDER [None]
  - INFECTION [None]
  - BRUXISM [None]
  - RHEUMATOID ARTHRITIS [None]
  - FRACTURE [None]
  - GINGIVAL INFECTION [None]
  - ANKLE FRACTURE [None]
  - DENTAL CARIES [None]
  - SENSITIVITY OF TEETH [None]
  - BONE LOSS [None]
  - PERIODONTITIS [None]
  - OSTEOPOROSIS [None]
